FAERS Safety Report 9753561 (Version 2)
Quarter: 2014Q1

REPORT INFORMATION
  Report Type: Spontaneous
  Country: IT (occurrence: IT)
  Receive Date: 20131213
  Receipt Date: 20140225
  Transmission Date: 20141002
  Serious: Yes (Other)
  Sender: FDA-Public Use
  Company Number: IT-BRISTOL-MYERS SQUIBB COMPANY-19879766

PATIENT
  Age: 35 Year
  Sex: Male

DRUGS (2)
  1. REYATAZ CAPS 300 MG [Suspect]
     Indication: ACUTE HIV INFECTION
     Route: 048
     Dates: start: 20130101, end: 20131008
  2. TRUVADA [Suspect]
     Indication: ACUTE HIV INFECTION
     Dosage: 1 DF= 200/245 MG TABS
     Route: 048
     Dates: start: 20130101, end: 20131008

REACTIONS (2)
  - Hyperbilirubinaemia [Recovering/Resolving]
  - Hypercreatininaemia [Recovering/Resolving]
